FAERS Safety Report 6329305-4 (Version None)
Quarter: 2009Q3

REPORT INFORMATION
  Report Type: 
  Country: None (occurrence: None)
  Receive Date: 20090818
  Receipt Date: 20090528
  Transmission Date: 20100115
  Serious: No
  Sender: FDA-Public Use
  Company Number: WAES 0905USA04035

PATIENT
  Age: 51 Year
  Sex: Female

DRUGS (5)
  1. JANUVIA [Suspect]
     Indication: TYPE 2 DIABETES MELLITUS
     Dosage: 100 MG/DAILY/PO : QOD/PO
     Route: 048
     Dates: start: 20080901, end: 20090401
  2. JANUVIA [Suspect]
     Indication: TYPE 2 DIABETES MELLITUS
     Dosage: 100 MG/DAILY/PO : QOD/PO
     Route: 048
     Dates: start: 20090401
  3. HUMULIN UNK [Suspect]
     Dates: start: 20090401
  4. DIOVAN HCT [Concomitant]
  5. GLUCOVANCE [Concomitant]

REACTIONS (6)
  - FLUSHING [None]
  - HYPERHIDROSIS [None]
  - INAPPROPRIATE SCHEDULE OF DRUG ADMINISTRATION [None]
  - INSOMNIA [None]
  - NASAL CONGESTION [None]
  - PAIN IN EXTREMITY [None]
